FAERS Safety Report 8436859-0 (Version None)
Quarter: 2012Q2

REPORT INFORMATION
  Report Type: 
  Country: None (occurrence: None)
  Receive Date: 20120323
  Receipt Date: 20111215
  Transmission Date: 20120825
  Serious: Yes (Disabling)
  Sender: FDA-Public Use
  Company Number: 163-21880-11070797

PATIENT
  Age: 56 Year
  Sex: Female
  Weight: 63.5036 kg

DRUGS (7)
  1. REVLIMID [Suspect]
     Indication: MULTIPLE MYELOMA
     Dosage: 10 MG, D1-21 Q 28 D, PO
     Route: 048
     Dates: start: 20100616
  2. ASPIRIN [Concomitant]
  3. ATENOLOL [Concomitant]
  4. LISINOPRIL [Concomitant]
  5. HYDROCHLOROTHIAZIIDE (HYDROCHLOROTHIAZIIDE) [Concomitant]
  6. METFFORMIN HYDROCHLORIDE [Concomitant]
  7. HYDROCODONE BITARTRATE [Concomitant]

REACTIONS (5)
  - MUSCULAR WEAKNESS [None]
  - TREMOR [None]
  - MALAISE [None]
  - MUSCLE SPASMS [None]
  - DIARRHOEA [None]
